FAERS Safety Report 6592922-0 (Version None)
Quarter: 2010Q1

REPORT INFORMATION
  Report Type: 
  Country: None (occurrence: None)
  Receive Date: 20100212
  Receipt Date: 20100201
  Transmission Date: 20100710
  Serious: Yes (Death)
  Sender: FDA-Public Use
  Company Number: 2010000578

PATIENT

DRUGS (1)
  1. ACTIQ            (FENTANYL CITRATA)           (1200 MICROGRAM, LOZENGE [Suspect]
     Dosage: (1200 MCG) BU
     Route: 002

REACTIONS (1)
  - INCORRECT DOSE ADMINISTERED [None]
